FAERS Safety Report 21285224 (Version 1)
Quarter: 2022Q3

REPORT INFORMATION
  Report Type: Spontaneous
  Country: US (occurrence: None)
  Receive Date: 20220901
  Receipt Date: 20220901
  Transmission Date: 20221027
  Serious: No
  Sender: FDA-Public Use
  Company Number: None

PATIENT
  Sex: Male

DRUGS (1)
  1. CAPECITABINE [Suspect]
     Active Substance: CAPECITABINE
     Dosage: OTHER QUANTITY : 2000MG AM, 1500MG;?FREQUENCY : TWICE A DAY;?
     Route: 048

REACTIONS (4)
  - Cancer pain [None]
  - Abdominal pain upper [None]
  - Stomatitis [None]
  - Constipation [None]
